FAERS Safety Report 14761998 (Version 2)
Quarter: 2018Q2

REPORT INFORMATION
  Report Type: Spontaneous
  Country: SG (occurrence: SG)
  Receive Date: 20180416
  Receipt Date: 20180423
  Transmission Date: 20180711
  Serious: Yes (Death, Hospitalization)
  Sender: FDA-Public Use
  Company Number: SG-ROCHE-2103503

PATIENT
  Sex: Male

DRUGS (1)
  1. TECENTRIQ [Suspect]
     Active Substance: ATEZOLIZUMAB
     Indication: NON-SMALL CELL LUNG CANCER
     Route: 065

REACTIONS (2)
  - Death [Fatal]
  - Chronic obstructive pulmonary disease [Unknown]
